FAERS Safety Report 15994956 (Version 3)
Quarter: 2020Q3

REPORT INFORMATION
  Report Type: Spontaneous
  Country: DE (occurrence: DE)
  Receive Date: 20190222
  Receipt Date: 20190506
  Transmission Date: 20201104
  Serious: Yes (Other)
  Sender: FDA-Public Use
  Company Number: DE-ROCHE-2269217

PATIENT
  Sex: Male
  Weight: 25.7 kg

DRUGS (3)
  1. TRANEXAMIC ACID. [Concomitant]
     Active Substance: TRANEXAMIC ACID
  2. EMICIZUMAB. [Suspect]
     Active Substance: EMICIZUMAB
     Route: 058
     Dates: start: 20180619
  3. EMICIZUMAB. [Suspect]
     Active Substance: EMICIZUMAB
     Indication: FACTOR VIII DEFICIENCY
     Dosage: SUBSEQUENT DOSES ON: 29/MAY/2018, 05/JUN/2018, 12/JUN/2018.
     Route: 058
     Dates: start: 20180522

REACTIONS (8)
  - Haematoma [Unknown]
  - Post procedural haemorrhage [Unknown]
  - Injection site pruritus [Recovering/Resolving]
  - Fall [Unknown]
  - Injury [Unknown]
  - Haemarthrosis [Unknown]
  - Injection site urticaria [Recovering/Resolving]
  - Limb injury [Unknown]
